FAERS Safety Report 8913694 (Version 1)
Quarter: 2012Q4

REPORT INFORMATION
  Report Type: 
  Country: US (occurrence: US)
  Receive Date: 20121119
  Receipt Date: 20121119
  Transmission Date: 20130627
  Serious: Yes (Hospitalization, Other)
  Sender: FDA-Public Use
  Company Number: US-JNJFOC-20121102964

PATIENT
  Sex: Female

DRUGS (1)
  1. DURAGESIC [Suspect]
     Indication: PRODUCT USED FOR UNKNOWN INDICATION
     Dosage: NDC 50458-093-05
     Route: 062

REACTIONS (3)
  - Adverse event [Not Recovered/Not Resolved]
  - Withdrawal syndrome [Recovered/Resolved]
  - Drug administration error [Unknown]
